FAERS Safety Report 15751194 (Version 4)
Quarter: 2019Q1

REPORT INFORMATION
  Report Type: Spontaneous
  Country: JP (occurrence: JP)
  Receive Date: 20181221
  Receipt Date: 20190304
  Transmission Date: 20190417
  Serious: Yes (Other)
  Sender: FDA-Public Use
  Company Number: JP-KYOWAKIRIN-2018AKK011398

PATIENT

DRUGS (8)
  1. TRIMEBUTINE MALEATE [Concomitant]
     Active Substance: TRIMEBUTINE MALEATE
     Indication: ADVERSE REACTION
     Dosage: 100 MG, TID
     Route: 048
     Dates: start: 20181024, end: 20181106
  2. PREDONINE [Concomitant]
     Active Substance: PREDNISOLONE
     Indication: MYCOSIS FUNGOIDES
     Dosage: 5 MG, QD
     Route: 048
     Dates: start: 20180911
  3. CLARITHROMYCIN. [Concomitant]
     Active Substance: CLARITHROMYCIN
     Indication: MYCOSIS FUNGOIDES
     Dosage: 200 MG, QD
     Route: 048
     Dates: start: 20180911, end: 20181111
  4. ITRACONAZOLE. [Concomitant]
     Active Substance: ITRACONAZOLE
     Indication: PROPHYLAXIS
     Dosage: 100 MG, QD
     Route: 048
     Dates: start: 20180911
  5. VEPESID [Concomitant]
     Active Substance: ETOPOSIDE
     Indication: MYCOSIS FUNGOIDES
     Dosage: 25 MG, 2X/WEEK
     Route: 048
     Dates: start: 20180913, end: 20181111
  6. POTELIGEO [Suspect]
     Active Substance: MOGAMULIZUMAB-KPKC
     Indication: MYCOSIS FUNGOIDES
     Dosage: 1 MG/KG, 4 TIMES
     Route: 041
     Dates: start: 20180919, end: 20181024
  7. BISONO [Concomitant]
     Active Substance: BISOPROLOL
     Indication: HYPERTENSION
     Dosage: 4 MG, QD
     Dates: start: 20180914
  8. FEXOFENADINE HYDROCHLORIDE. [Concomitant]
     Active Substance: FEXOFENADINE HYDROCHLORIDE
     Indication: PRURITUS
     Dosage: 60 MG, BID
     Route: 048
     Dates: start: 20180908, end: 20190106

REACTIONS (1)
  - Anaphylactic reaction [Recovered/Resolved]

NARRATIVE: CASE EVENT DATE: 20181024
